FAERS Safety Report 18954290 (Version 3)
Quarter: 2021Q4

REPORT INFORMATION
  Report Type: Spontaneous
  Country: US (occurrence: US)
  Receive Date: 20210301
  Receipt Date: 20211117
  Transmission Date: 20220304
  Serious: Yes (Hospitalization)
  Sender: FDA-Public Use
  Company Number: US-PFIZER INC-2021204513

PATIENT
  Age: 80 Year
  Sex: Male

DRUGS (1)
  1. INLYTA [Suspect]
     Active Substance: AXITINIB
     Indication: Renal cancer
     Dosage: 5 MG

REACTIONS (14)
  - Hypertension [Unknown]
  - Product dose omission in error [Unknown]
  - Dizziness [Unknown]
  - Bone pain [Unknown]
  - Arthralgia [Unknown]
  - Decreased appetite [Unknown]
  - Headache [Unknown]
  - Stomatitis [Unknown]
  - Fatigue [Unknown]
  - Gait disturbance [Unknown]
  - Nausea [Unknown]
  - Oral mucosal blistering [Unknown]
  - Constipation [Unknown]
  - Diarrhoea [Unknown]

NARRATIVE: CASE EVENT DATE: 20210101
